FAERS Safety Report 5407989-2 (Version None)
Quarter: 2007Q3

REPORT INFORMATION
  Report Type: 
  Country: None (occurrence: None)
  Receive Date: 20070803
  Receipt Date: 20070725
  Transmission Date: 20080115
  Serious: Yes (Death)
  Sender: FDA-Public Use
  Company Number: GXKR2007GB06396

PATIENT
  Age: 23 Year
  Sex: Female
  Weight: 70 kg

DRUGS (4)
  1. SERTRALINE [Suspect]
     Indication: DEPRESSION
     Dosage: ORAL
     Route: 048
  2. MICROGYNON (ETHINYLESTRADIOL, LEVONORGESTREL) [Concomitant]
  3. IBUPROFEN [Concomitant]
  4. ANTIBIOTIC NOC [Concomitant]

REACTIONS (3)
  - ARRHYTHMIA [None]
  - CARDIAC ARREST [None]
  - SUDDEN DEATH [None]
